FAERS Safety Report 24133256 (Version 1)
Quarter: 2024Q3

REPORT INFORMATION
  Report Type: Spontaneous
  Country: NL (occurrence: NL)
  Receive Date: 20240724
  Receipt Date: 20240724
  Transmission Date: 20241016
  Serious: Yes (Life-Threatening)
  Sender: BOEHRINGER INGELHEIM
  Company Number: NL-BoehringerIngelheim-2024-BI-041710

PATIENT
  Age: 35 Year
  Sex: Male
  Weight: 88 kg

DRUGS (7)
  1. CLONIDINE [Suspect]
     Active Substance: CLONIDINE
     Indication: Anxiolytic therapy
     Dosage: 5ML/HOUR TO 10ML/HOUR (50UG/HOUR UP TO 100 UG/HOUR)
     Dates: start: 20240512, end: 20240519
  2. KALIUMCHLORIDE DRANK 75MG/ML (1MMOL/ML) [Concomitant]
     Indication: Product used for unknown indication
     Dosage: 75 MG/ML (MILLIGRAM PER MILLILITER)
  3. DALTEPARINE INJVLST 25.000IE/ML [Concomitant]
     Indication: Product used for unknown indication
     Dosage: INJECTIEVLOEIST OF, 25.000 IE/ML (EENHEDEN PER MILLILITER)
  4. PROPOFOL INJECTIE/INFUUS [Concomitant]
     Indication: Product used for unknown indication
     Dosage: 1 MG /ML
  5. NORADRENALINE INFVLST 0,2MG/ML [Concomitant]
     Indication: Product used for unknown indication
     Dosage: 0,2 MG/ML
  6. FENTANYL INFVLST 0,05MG/ML [Concomitant]
     Indication: Product used for unknown indication
     Dosage: 0,05 MG/ML (MILLIGRAM PER MILLILITER)
  7. ALPRAZOLAM TABLET 0,5MG [Concomitant]
     Indication: Product used for unknown indication

REACTIONS (2)
  - Presyncope [Recovered/Resolved]
  - Atrioventricular block complete [Recovered/Resolved]
